FAERS Safety Report 8909604 (Version 2)
Quarter: 2012Q4

REPORT INFORMATION
  Report Type: 
  Country: US (occurrence: US)
  Receive Date: 20121115
  Receipt Date: 20121119
  Transmission Date: 20130627
  Serious: Yes (Other)
  Sender: FDA-Public Use
  Company Number: US-BAYER-2012-117305

PATIENT
  Age: 25 Year
  Sex: Female
  Weight: 99.77 kg

DRUGS (2)
  1. OCELLA [Suspect]
  2. YASMIN [Suspect]

REACTIONS (1)
  - Thrombophlebitis superficial [Recovering/Resolving]
